FAERS Safety Report 9659340 (Version 1)
Quarter: 2013Q4

REPORT INFORMATION
  Report Type: Spontaneous
  Country: US (occurrence: US)
  Receive Date: 20131031
  Receipt Date: 20131031
  Transmission Date: 20140711
  Serious: No
  Sender: FDA-Public Use
  Company Number: US-009507513-1310USA014560

PATIENT
  Age: 42 Year
  Sex: Female

DRUGS (3)
  1. SAPHRIS [Suspect]
     Indication: BIPOLAR DISORDER
     Dosage: UNK
     Route: 048
     Dates: start: 20130915, end: 20131024
  2. LEXAPRO [Concomitant]
  3. AMBIEN [Concomitant]
     Dosage: 10 MG, PRN

REACTIONS (1)
  - Weight increased [Unknown]
